FAERS Safety Report 10163676 (Version 1)
Quarter: 2014Q2

REPORT INFORMATION
  Report Type: Spontaneous
  Country: DK (occurrence: DE)
  Receive Date: 20140509
  Receipt Date: 20140509
  Transmission Date: 20141212
  Serious: Yes (Congenital Anomaly, Other)
  Sender: FDA-Public Use
  Company Number: DE-FRI-1000067099

PATIENT
  Age: 1 Day
  Sex: Female
  Weight: 2.93 kg

DRUGS (4)
  1. ESCITALOPRAM ORAL SOLUTION [Suspect]
     Dosage: 6 MG
     Route: 064
     Dates: start: 20130409
  2. ESCITALOPRAM ORAL SOLUTION [Suspect]
     Dosage: 3 MG
     Route: 064
     Dates: end: 20140116
  3. L-THYROXIN [Concomitant]
     Indication: AUTOIMMUNE THYROIDITIS
     Dosage: 100 MCG
     Route: 064
     Dates: start: 20130409, end: 20140116
  4. FOLSAEURE [Concomitant]
     Indication: PROPHYLAXIS OF NEURAL TUBE DEFECT
     Route: 064

REACTIONS (4)
  - Cleft lip [Not Recovered/Not Resolved]
  - Syndactyly [Not Recovered/Not Resolved]
  - Small for dates baby [Recovering/Resolving]
  - Foetal exposure during pregnancy [Not Recovered/Not Resolved]
